FAERS Safety Report 12916097 (Version 3)
Quarter: 2016Q4

REPORT INFORMATION
  Report Type: Report from Study
  Country: CA (occurrence: CA)
  Receive Date: 20161104
  Receipt Date: 20161209
  Transmission Date: 20170207
  Serious: Yes (Other)
  Sender: FDA-Public Use
  Company Number: PHHY2016CA150380

PATIENT
  Age: 51 Year
  Sex: Female

DRUGS (2)
  1. PREDNISONE. [Suspect]
     Active Substance: PREDNISONE
     Indication: PRODUCT USED FOR UNKNOWN INDICATION
     Dosage: 5 MG, UNK (TAPERING DOSE)
     Route: 065
  2. REVOLADE [Suspect]
     Active Substance: ELTROMBOPAG
     Indication: IMMUNE THROMBOCYTOPENIC PURPURA
     Dosage: 25 MG, QD
     Route: 048
     Dates: start: 20160914, end: 20161027

REACTIONS (9)
  - Condition aggravated [Unknown]
  - Blister [Recovering/Resolving]
  - Rash erythematous [Unknown]
  - Skin reaction [Unknown]
  - Sunburn [Recovering/Resolving]
  - Fixed drug eruption [Unknown]
  - Rash [Unknown]
  - Skin exfoliation [Recovering/Resolving]
  - Drug interaction [Unknown]

NARRATIVE: CASE EVENT DATE: 20161020
